FAERS Safety Report 9249420 (Version 2)
Quarter: 2013Q2

REPORT INFORMATION
  Report Type: Spontaneous
  Country: US (occurrence: US)
  Receive Date: 20130423
  Receipt Date: 20130516
  Transmission Date: 20140414
  Serious: Yes (Death)
  Sender: FDA-Public Use
  Company Number: US-GLAXOSMITHKLINE-A1020244A

PATIENT
  Age: 54 Year
  Sex: Female
  Weight: 60 kg

DRUGS (5)
  1. TYKERB [Suspect]
     Indication: BRAIN NEOPLASM MALIGNANT
     Dosage: 2500MG PER DAY
     Route: 048
     Dates: start: 201302, end: 201303
  2. VIMPAT [Concomitant]
  3. KEPPRA [Concomitant]
  4. DECADRON [Concomitant]
  5. LAMICTAL [Concomitant]

REACTIONS (2)
  - Brain neoplasm malignant [Fatal]
  - Disease progression [Fatal]
